FAERS Safety Report 11569261 (Version 2)
Quarter: 2015Q4

REPORT INFORMATION
  Report Type: Spontaneous
  Country: JP (occurrence: JP)
  Receive Date: 20150929
  Receipt Date: 20151028
  Transmission Date: 20160304
  Serious: Yes (Death)
  Sender: FDA-Public Use
  Company Number: JP-ASTELLAS-2015JP019393AA

PATIENT
  Age: 78 Year
  Sex: Female

DRUGS (3)
  1. BETANIS [Suspect]
     Active Substance: MIRABEGRON
     Indication: HYPERTONIC BLADDER
     Route: 048
     Dates: start: 20150522
  2. URSO [Suspect]
     Active Substance: URSODIOL
     Indication: PRODUCT USED FOR UNKNOWN INDICATION
     Route: 048
  3. BETANIS [Suspect]
     Active Substance: MIRABEGRON
     Indication: NOCTURIA

REACTIONS (1)
  - Ileus paralytic [Fatal]
